FAERS Safety Report 14194543 (Version 1)
Quarter: 2017Q4

REPORT INFORMATION
  Report Type: Spontaneous
  Country: US (occurrence: US)
  Receive Date: 20171115
  Receipt Date: 20171115
  Transmission Date: 20180321
  Serious: No
  Sender: FDA-Public Use
  Company Number: None

PATIENT
  Sex: Female
  Weight: 57.15 kg

DRUGS (4)
  1. VIGAMOX [Suspect]
     Active Substance: MOXIFLOXACIN HYDROCHLORIDE
     Indication: CONJUNCTIVITIS
     Route: 047
  2. ADAPALENE. [Concomitant]
     Active Substance: ADAPALENE
  3. PRENATAL VITAMINS [Concomitant]
     Active Substance: VITAMINS
  4. SULFUR CLEANSER [Concomitant]
     Active Substance: SULFUR

REACTIONS (4)
  - Eyelid disorder [None]
  - Feeling abnormal [None]
  - Eye pain [None]
  - Eye disorder [None]

NARRATIVE: CASE EVENT DATE: 20171103
